FAERS Safety Report 5822352-8 (Version None)
Quarter: 2008Q3

REPORT INFORMATION
  Report Type: 
  Country: None (occurrence: None)
  Receive Date: 20080723
  Receipt Date: 20080723
  Transmission Date: 20090109
  Serious: No
  Sender: FDA-Public Use
  Company Number: None

PATIENT
  Age: 55 Year
  Sex: Female
  Weight: 88.4514 kg

DRUGS (1)
  1. MINOCYCLINE HCL [Suspect]
     Indication: ACNE
     Dosage: 100MG 2X DAILY PO
     Route: 048
     Dates: start: 20010101, end: 20080607

REACTIONS (5)
  - FEAR [None]
  - PHARMACEUTICAL PRODUCT COMPLAINT [None]
  - PIGMENTATION DISORDER [None]
  - SKIN DISCOLOURATION [None]
  - SKIN DISORDER [None]
